FAERS Safety Report 25326013 (Version 1)
Quarter: 2025Q2

REPORT INFORMATION
  Report Type: Report from Study
  Country: BR (occurrence: BR)
  Receive Date: 20250516
  Receipt Date: 20250516
  Transmission Date: 20250716
  Serious: Yes (Disabling, Other)
  Sender: TAKEDA
  Company Number: BR-TAKEDA-2023TUS104423

PATIENT
  Sex: Male

DRUGS (1)
  1. HEMO-8R [Suspect]
     Active Substance: ANTIHEMOPHILIC FACTOR, HUMAN RECOMBINANT
     Indication: Factor VIII deficiency
     Dosage: 2000 INTERNATIONAL UNIT, 3/WEEK
     Dates: start: 1977

REACTIONS (3)
  - Disability [Unknown]
  - Product availability issue [Unknown]
  - Inappropriate schedule of product administration [Unknown]
